FAERS Safety Report 16341758 (Version 1)
Quarter: 2019Q2

REPORT INFORMATION
  Report Type: Spontaneous
  Country: IN (occurrence: IN)
  Receive Date: 20190522
  Receipt Date: 20190522
  Transmission Date: 20190711
  Serious: Yes (Other)
  Sender: FDA-Public Use
  Company Number: IN-FRESENIUS KABI-FK201905758

PATIENT
  Age: 24 Year
  Sex: Female

DRUGS (7)
  1. TIMOLOL. [Suspect]
     Active Substance: TIMOLOL
     Indication: GLAUCOMA
     Dosage: 0,5 PERCENT
     Route: 061
  2. LIDOCAINE HYDROCHLORIDE. [Concomitant]
     Active Substance: LIDOCAINE HYDROCHLORIDE
     Indication: NERVE BLOCK
     Route: 065
  3. HYALURONIDASE [Concomitant]
     Active Substance: HYALURONIDASE
     Indication: NERVE BLOCK
     Route: 065
  4. PILOCARPINE. [Suspect]
     Active Substance: PILOCARPINE
     Indication: GLAUCOMA
     Route: 061
  5. MANNITOL (MANUFACTURER UNKNOWN) [Suspect]
     Active Substance: MANNITOL
     Indication: GLAUCOMA
     Dosage: SYSTEMIC
     Route: 065
  6. GLYCEROL [Suspect]
     Active Substance: GLYCERIN
     Indication: GLAUCOMA
     Dosage: SYSTEMIC
     Route: 065
  7. BUPIVACAINE. [Concomitant]
     Active Substance: BUPIVACAINE
     Indication: NERVE BLOCK
     Dosage: 0,75 PERCENT
     Route: 065

REACTIONS (2)
  - Exposure during pregnancy [Unknown]
  - Retinopathy [Recovering/Resolving]
